FAERS Safety Report 4823351-5 (Version None)
Quarter: 2005Q4

REPORT INFORMATION
  Report Type: 
  Country: None (occurrence: None)
  Receive Date: 20051107
  Receipt Date: 20051027
  Transmission Date: 20060501
  Serious: Yes (Hospitalization, Other)
  Sender: FDA-Public Use
  Company Number: 2005-10-0227

PATIENT
  Age: 70 Year
  Sex: Male

DRUGS (4)
  1. FLUTAMIDE [Suspect]
     Indication: PROSTATE CANCER
     Dosage: 3 QD ORAL
     Route: 048
     Dates: start: 20000602, end: 20000904
  2. ZOLADEX [Suspect]
     Dosage: 3.6MG QM SUBCUTANEOUS
     Route: 058
     Dates: start: 20000602, end: 20000904
  3. ISOPTIN - SLOW RELEASE TABLETS [Concomitant]
  4. CAPTEA TABLETS [Concomitant]

REACTIONS (2)
  - INTERSTITIAL LUNG DISEASE [None]
  - NEUTROPHIL PERCENTAGE DECREASED [None]
